FAERS Safety Report 5115059-6 (Version None)
Quarter: 2006Q3

REPORT INFORMATION
  Report Type: 
  Country: None (occurrence: None)
  Receive Date: 20060921
  Receipt Date: 20060825
  Transmission Date: 20061208
  Serious: Yes (Other)
  Sender: FDA-Public Use
  Company Number: 2006RR-03428

PATIENT
  Age: 16 Year
  Sex: Male

DRUGS (1)
  1. ISOTRETINOIN [Suspect]
     Indication: ACNE CYSTIC
     Dosage: SEE IMAGE

REACTIONS (7)
  - ATRIAL TACHYCARDIA [None]
  - CHEILITIS [None]
  - CHEST DISCOMFORT [None]
  - DRY EYE [None]
  - DYSPNOEA [None]
  - NAIL DISORDER [None]
  - SUPRAVENTRICULAR EXTRASYSTOLES [None]
